FAERS Safety Report 9166031 (Version 1)
Quarter: 2013Q1

REPORT INFORMATION
  Report Type: Report from Study
  Country: RO (occurrence: RO)
  Receive Date: 20130315
  Receipt Date: 20130315
  Transmission Date: 20140127
  Serious: Yes (Other)
  Sender: FDA-Public Use
  Company Number: RO-GLAXOSMITHKLINE-B0875106A

PATIENT
  Sex: 0

DRUGS (1)
  1. ACYCLOVIR [Suspect]
     Indication: ANTIVIRAL PROPHYLAXIS
     Route: 065

REACTIONS (7)
  - Drug ineffective [Unknown]
  - Pneumonia cytomegaloviral [Recovering/Resolving]
  - Respiratory failure [Unknown]
  - Mechanical ventilation [Unknown]
  - Interstitial lung disease [Unknown]
  - Cytomegalovirus infection [Unknown]
  - Graft versus host disease in lung [Unknown]
